FAERS Safety Report 4956029-8 (Version None)
Quarter: 2006Q1

REPORT INFORMATION
  Report Type: 
  Country: None (occurrence: None)
  Receive Date: 20060328
  Receipt Date: 20050919
  Transmission Date: 20060701
  Serious: Yes (Hospitalization, Disabling)
  Sender: FDA-Public Use
  Company Number: US-MERCK-0509USA03003

PATIENT
  Age: 39 Year
  Sex: Female
  Weight: 68 kg

DRUGS (7)
  1. VIOXX [Suspect]
     Indication: MONARTHRITIS
     Route: 048
     Dates: start: 20000901, end: 20040930
  2. VIOXX [Suspect]
     Indication: SPONDYLITIS
     Route: 048
     Dates: start: 20000901, end: 20040930
  3. DARVOCET [Concomitant]
     Route: 065
  4. ALLEGRA [Concomitant]
     Indication: HYPERSENSITIVITY
     Route: 065
  5. ALLEGRA [Concomitant]
     Indication: SINUSITIS
     Route: 065
  6. FLEXERIL [Concomitant]
     Indication: MUSCLE SPASMS
     Route: 065
  7. VANCERIL [Concomitant]
     Indication: ASTHMA
     Route: 065

REACTIONS (22)
  - ANAEMIA [None]
  - ANXIETY [None]
  - BLOOD CHOLESTEROL INCREASED [None]
  - BLOOD DISORDER [None]
  - CHEST PAIN [None]
  - COSTOCHONDRITIS [None]
  - DEEP VEIN THROMBOSIS [None]
  - DRY MOUTH [None]
  - DYSPEPSIA [None]
  - DYSPNOEA [None]
  - GASTROOESOPHAGEAL REFLUX DISEASE [None]
  - HEART RATE IRREGULAR [None]
  - HYPERSENSITIVITY [None]
  - LACRIMAL DISORDER [None]
  - OEDEMA PERIPHERAL [None]
  - PANIC DISORDER [None]
  - PHARYNGEAL POLYP [None]
  - PULMONARY SARCOIDOSIS [None]
  - SARCOIDOSIS [None]
  - SUPRAVENTRICULAR TACHYCARDIA [None]
  - THYROID DISORDER [None]
  - UTERINE DISORDER [None]
